FAERS Safety Report 9024843 (Version 1)
Quarter: 2013Q1

REPORT INFORMATION
  Report Type: Spontaneous
  Country: US (occurrence: None)
  Receive Date: 20121231
  Receipt Date: 20121231
  Transmission Date: 20140127
  Serious: Yes (Other)
  Sender: FDA-Public Use
  Company Number: UCM201212-000089

PATIENT
  Age: 6 Year
  Sex: Male

DRUGS (3)
  1. CLONIDINE HCL [Suspect]
     Dosage: 5 MCG/KG (MAX 0.15 MG)
  2. ARGININE HYDROCHLORIDE [Suspect]
     Dosage: 5 ML/KG (MAX 30 G), INTRAVENOUS, 45 MIN
  3. DESMOPRESSIN [Concomitant]

REACTIONS (2)
  - Haematuria [None]
  - Hypotension [None]
